FAERS Safety Report 25103378 (Version 1)
Quarter: 2025Q1

REPORT INFORMATION
  Report Type: Report from Study
  Country: US (occurrence: US)
  Receive Date: 20250321
  Receipt Date: 20250321
  Transmission Date: 20250409
  Serious: Yes (Other)
  Sender: ACADIA PHARMACEUTICALS
  Company Number: US-ACADIA PHARMACEUTICALS INC.-ACA-2025-PIM-003056

PATIENT
  Age: 69 Year
  Sex: Male

DRUGS (11)
  1. NUPLAZID [Suspect]
     Active Substance: PIMAVANSERIN TARTRATE
     Indication: Parkinson^s disease
     Dosage: 34 MILLIGRAM, QD
     Route: 048
     Dates: start: 20231010
  2. ALPRAZOLAM [Concomitant]
     Active Substance: ALPRAZOLAM
  3. OXYCODONE [Concomitant]
     Active Substance: OXYCODONE
  4. TYLENOL [Concomitant]
     Active Substance: ACETAMINOPHEN
  5. SENNA LEAF [Concomitant]
     Active Substance: SENNA LEAF
  6. CHOLECALCIFEROL [Concomitant]
     Active Substance: CHOLECALCIFEROL
  7. CARBIDOPA\LEVODOPA [Concomitant]
     Active Substance: CARBIDOPA\LEVODOPA
  8. MIDODRINE [Concomitant]
     Active Substance: MIDODRINE
  9. SIMVASTATIN [Concomitant]
     Active Substance: SIMVASTATIN
  10. ESCITALOPRAM [Concomitant]
     Active Substance: ESCITALOPRAM OXALATE
  11. ELIQUIS [Concomitant]
     Active Substance: APIXABAN

REACTIONS (1)
  - Hallucination [Not Recovered/Not Resolved]

NARRATIVE: CASE EVENT DATE: 20250201
